FAERS Safety Report 9785773 (Version 3)
Quarter: 2014Q1

REPORT INFORMATION
  Report Type: Report from Study
  Country: JP (occurrence: JP)
  Receive Date: 20131227
  Receipt Date: 20140221
  Transmission Date: 20141002
  Serious: Yes (Death)
  Sender: FDA-Public Use
  Company Number: JP-TAKEDA-TCI2012A02601

PATIENT
  Age: 75 Year
  Sex: Female

DRUGS (8)
  1. ALOGLIPTIN [Suspect]
     Indication: TYPE 2 DIABETES MELLITUS
     Dosage: 25 MG, QD
     Route: 048
     Dates: start: 20120130, end: 20120427
  2. BENET [Concomitant]
     Dosage: 17.5 MG,1 DAYS
     Route: 048
  3. AMARYL [Concomitant]
     Indication: TYPE 2 DIABETES MELLITUS
     Dosage: 1 MG,1 DAYS
     Route: 048
  4. GLUCOBAY [Concomitant]
     Indication: TYPE 2 DIABETES MELLITUS
     Dosage: 300 MG, 1 DAYS
     Route: 048
  5. DIOVAN [Concomitant]
     Dosage: 80 MG, 1 DAYS
     Route: 048
  6. FAMOSTAGINE [Concomitant]
     Dosage: 20 MG, 1 DAYS
     Route: 048
  7. LIVALO [Concomitant]
     Dosage: 1 MG, 1 DAYS
     Route: 048
  8. FOIPAN [Concomitant]
     Dosage: 600 MG,1 DAYS
     Route: 048

REACTIONS (1)
  - Road traffic accident [Fatal]
